FAERS Safety Report 9323326 (Version 2)
Quarter: 2013Q2

REPORT INFORMATION
  Report Type: Report from Study
  Country: DE (occurrence: DE)
  Receive Date: 20130603
  Receipt Date: 20130621
  Transmission Date: 20140414
  Serious: Yes (Hospitalization)
  Sender: FDA-Public Use
  Company Number: DE-PFIZER INC-2012007821

PATIENT
  Age: 57 Year
  Sex: Male
  Weight: 81.4 kg

DRUGS (1)
  1. TOFACITINIB CITRATE [Suspect]
     Indication: PSORIASIS
     Dosage: 10 MG, 2X/DAY
     Route: 048
     Dates: start: 20110628, end: 20111219

REACTIONS (1)
  - Chronic obstructive pulmonary disease [Recovered/Resolved]
